FAERS Safety Report 6334366-2 (Version None)
Quarter: 2009Q3

REPORT INFORMATION
  Report Type: 
  Country: None (occurrence: None)
  Receive Date: 20090831
  Receipt Date: 20090824
  Transmission Date: 20100115
  Serious: Yes (Hospitalization)
  Sender: FDA-Public Use
  Company Number: US-SP-2009-02606

PATIENT
  Age: 52 Year
  Sex: Male

DRUGS (1)
  1. THERACYS [Suspect]
     Indication: BLADDER CANCER
     Route: 043
     Dates: start: 20090223, end: 20090516

REACTIONS (5)
  - DECREASED APPETITE [None]
  - DYSURIA [None]
  - LUNG NEOPLASM [None]
  - PYREXIA [None]
  - WEIGHT DECREASED [None]
